FAERS Safety Report 21058002 (Version 2)
Quarter: 2022Q3

REPORT INFORMATION
  Report Type: Spontaneous
  Country: ES (occurrence: ES)
  Receive Date: 20220708
  Receipt Date: 20220713
  Transmission Date: 20221026
  Serious: Yes (Life-Threatening, Hospitalization, Other)
  Sender: FDA-Public Use
  Company Number: ES-MLMSERVICE-20220623-3633520-1

PATIENT
  Age: 47 Year
  Sex: Male

DRUGS (10)
  1. AZITHROMYCIN [Suspect]
     Active Substance: AZITHROMYCIN
     Indication: COVID-19 treatment
     Dosage: 500 MG, 1X/DAY
     Dates: start: 20200318, end: 20200323
  2. DAPTOMYCIN [Suspect]
     Active Substance: DAPTOMYCIN
     Indication: Staphylococcal infection
     Dosage: 500 MG, 1X/DAY
     Dates: start: 202004, end: 202004
  3. DAPTOMYCIN [Suspect]
     Active Substance: DAPTOMYCIN
     Indication: Staphylococcal bacteraemia
  4. LINEZOLID [Suspect]
     Active Substance: LINEZOLID
     Dosage: 600 MG, 2X/DAY (EVERY 12 HOURS)
     Dates: start: 202003, end: 202004
  5. MEROPENEM [Suspect]
     Active Substance: MEROPENEM
     Indication: Staphylococcal bacteraemia
     Dosage: 1000 MG, 3X/DAY (EVERY 8 HOURS)
     Dates: start: 202003, end: 202004
  6. MEROPENEM [Suspect]
     Active Substance: MEROPENEM
     Indication: Staphylococcal infection
  7. HYDROXYCHLOROQUINE [Suspect]
     Active Substance: HYDROXYCHLOROQUINE
     Indication: COVID-19 treatment
     Dosage: 200 MG, 2X/DAY (EVERY 12 HOURS)
     Dates: start: 20200318, end: 20200323
  8. CEFTRIAXONE [Suspect]
     Active Substance: CEFTRIAXONE
     Dosage: UNK
  9. LOPINAVIR\RITONAVIR [Concomitant]
     Active Substance: LOPINAVIR\RITONAVIR
     Indication: COVID-19
     Dosage: 400/100MG  (EVERY 12 HOURS)
     Dates: start: 20200318, end: 20200401
  10. INTERFERON [Concomitant]
     Active Substance: INTERFERON
     Indication: COVID-19
     Dosage: 250 MG, EVERY TWO DAYS

REACTIONS (4)
  - Intervertebral discitis [Recovered/Resolved]
  - Systemic candida [Recovered/Resolved]
  - Candida infection [Recovered/Resolved]
  - Chorioretinitis [Recovered/Resolved]

NARRATIVE: CASE EVENT DATE: 20200101
